FAERS Safety Report 15982506 (Version 6)
Quarter: 2019Q2

REPORT INFORMATION
  Report Type: Report from Study
  Country: TR (occurrence: TR)
  Receive Date: 20190219
  Receipt Date: 20190403
  Transmission Date: 20190711
  Serious: Yes (Hospitalization)
  Sender: FDA-Public Use
  Company Number: TR-REGENERON PHARMACEUTICALS, INC.-2019-17300

PATIENT

DRUGS (8)
  1. KEPPRA [Concomitant]
     Active Substance: LEVETIRACETAM
     Indication: PROPHYLAXIS
     Dosage: 500 MG, BID
     Route: 048
     Dates: start: 20181024
  2. APRANAX                            /00256201/ [Concomitant]
     Active Substance: NAPROXEN
     Indication: CARPAL TUNNEL SYNDROME
     Dosage: 550 MG, TID
     Route: 048
     Dates: end: 20190211
  3. DEKORT                             /00016001/ [Concomitant]
     Dosage: 4MG, QD
     Route: 048
     Dates: start: 20190116, end: 20190120
  4. THYROMAZOL [Concomitant]
     Indication: HYPERTHYROIDISM
     Dosage: 5 MG, QD
     Route: 048
     Dates: end: 201901
  5. VENTOLIN [Concomitant]
     Active Substance: ALBUTEROL SULFATE
     Indication: CHRONIC OBSTRUCTIVE PULMONARY DISEASE
     Dosage: 100 ?G, BID
     Route: 055
     Dates: start: 2018
  6. DEKORT                             /00016001/ [Concomitant]
     Indication: PROPHYLAXIS
     Dosage: 8 MG, BID
     Route: 048
     Dates: start: 20181220, end: 20190110
  7. CEMIPLIMAB [Suspect]
     Active Substance: CEMIPLIMAB
     Indication: LUNG ADENOCARCINOMA STAGE IV
     Dosage: 350 MG, Q3W
     Route: 042
     Dates: start: 20190206
  8. DEKORT                             /00016001/ [Concomitant]
     Dosage: 8 MG, QD
     Route: 048
     Dates: start: 20190111, end: 20190115

REACTIONS (2)
  - Decreased appetite [Recovered/Resolved]
  - Pyrexia [Recovered/Resolved]

NARRATIVE: CASE EVENT DATE: 20190208
